FAERS Safety Report 15368142 (Version 1)
Quarter: 2018Q3

REPORT INFORMATION
  Report Type: Spontaneous
  Country: JP (occurrence: JP)
  Receive Date: 20180910
  Receipt Date: 20180910
  Transmission Date: 20181010
  Serious: Yes (Other)
  Sender: FDA-Public Use
  Company Number: JP-SHIRE-JP201834413AA

PATIENT
  Age: 14 Year
  Sex: Male
  Weight: 40 kg

DRUGS (4)
  1. FEIBA NF [Suspect]
     Active Substance: ANTI-INHIBITOR COAGULANT COMPLEX
     Indication: HAEMORRHAGE PROPHYLAXIS
     Dosage: UNK, AS REQ^D
     Route: 042
  2. NOVOSEVEN [Concomitant]
     Active Substance: COAGULATION FACTOR VIIA RECOMBINANT HUMAN
     Indication: HAEMORRHAGE
     Route: 065
  3. FEIBA NF [Suspect]
     Active Substance: ANTI-INHIBITOR COAGULANT COMPLEX
     Indication: HAEMORRHAGE
     Dosage: 1000 IU, UNKNOWN
     Route: 042
     Dates: start: 201805
  4. NOVACT?M [Concomitant]
     Active Substance: FACTOR IX COMPLEX
     Indication: IMMUNE TOLERANCE INDUCTION
     Route: 065

REACTIONS (1)
  - Nephrotic syndrome [Unknown]
